FAERS Safety Report 8529420-0 (Version None)
Quarter: 2012Q3

REPORT INFORMATION
  Report Type: 
  Country: None (occurrence: None)
  Receive Date: 20120723
  Receipt Date: 20120703
  Transmission Date: 20120928
  Serious: Yes (Hospitalization)
  Sender: FDA-Public Use
  Company Number: HR-JNJFOC-20120709254

PATIENT
  Sex: Female

DRUGS (15)
  1. SIMPONI [Suspect]
     Dosage: THIRD DOSE
     Route: 058
     Dates: end: 20120222
  2. MEDROL [Concomitant]
     Route: 065
  3. DICLOFENAC SODIUM [Concomitant]
     Route: 065
     Dates: start: 20100101
  4. SIMPONI [Suspect]
     Indication: PSORIATIC ARTHROPATHY
     Dosage: FIRST DOSE
     Route: 058
     Dates: start: 20111214
  5. FEXOFENADINE HCL [Concomitant]
     Route: 065
  6. SIMPONI [Suspect]
     Dosage: SECOND DOSE
     Route: 058
     Dates: start: 20120116
  7. SOLU-MEDROL [Concomitant]
     Indication: PSORIATIC ARTHROPATHY
     Route: 065
     Dates: start: 20060101
  8. ALLOPURINOL [Concomitant]
     Indication: PSORIATIC ARTHROPATHY
     Route: 065
     Dates: start: 20090101
  9. FOLIC ACID [Concomitant]
     Route: 065
     Dates: start: 20060101
  10. INDAPAMID [Concomitant]
     Route: 065
  11. TRAMADOL HCL [Concomitant]
     Indication: PSORIATIC ARTHROPATHY
     Route: 065
     Dates: start: 20060101
  12. TRANDOLAPRIL [Concomitant]
     Route: 065
     Dates: start: 20090101
  13. METHOTREXATE [Concomitant]
     Indication: PSORIATIC ARTHROPATHY
     Route: 065
     Dates: start: 20050101
  14. PANTOPRAZOLE [Concomitant]
     Route: 065
     Dates: start: 20070101
  15. INDOMETHACIN [Concomitant]
     Route: 065
     Dates: start: 20050101, end: 20100101

REACTIONS (4)
  - VERTIGO [None]
  - HEADACHE [None]
  - ASTHENIA [None]
  - PARAESTHESIA [None]
